FAERS Safety Report 12892736 (Version 1)
Quarter: 2016Q4

REPORT INFORMATION
  Report Type: Spontaneous
  Country: US (occurrence: US)
  Receive Date: 20161028
  Receipt Date: 20161028
  Transmission Date: 20170207
  Serious: Yes (Hospitalization)
  Sender: FDA-Public Use
  Company Number: None

PATIENT
  Age: 77 Year
  Sex: Male
  Weight: 90.1 kg

DRUGS (2)
  1. FENTANYL. [Suspect]
     Active Substance: FENTANYL
     Indication: THERAPEUTIC PROCEDURE
     Dosage: FENTANYL - DATES OF USE - RECENT
     Route: 042
  2. VERSED [Suspect]
     Active Substance: MIDAZOLAM HYDROCHLORIDE
     Indication: THERAPEUTIC PROCEDURE
     Dosage: VERDES - DATES OF USE - RECENT
     Route: 042

REACTIONS (3)
  - Depressed level of consciousness [None]
  - Respiratory failure [None]
  - Post procedural complication [None]

NARRATIVE: CASE EVENT DATE: 20150617
